FAERS Safety Report 8762406 (Version 1)
Quarter: 2012Q4

REPORT INFORMATION
  Report Type: 
  Country: US (occurrence: US)
  Receive Date: 20120830
  Receipt Date: 20120830
  Transmission Date: 20130627
  Serious: No
  Sender: FDA-Public Use
  Company Number: US-PFIZER INC-2012210428

PATIENT
  Age: 38 Year
  Sex: Male
  Weight: 99.77 kg

DRUGS (6)
  1. NEURONTIN [Suspect]
     Indication: NEURALGIA
     Dosage: UNK
     Route: 048
  2. NEURONTIN [Suspect]
     Indication: NEUROPATHY PERIPHERAL
     Dosage: four capsules a day
     Route: 048
  3. NEURONTIN [Suspect]
     Dosage: three capsules a day
     Route: 048
     Dates: end: 2012
  4. PRISTIQ [Suspect]
     Indication: DEPRESSION
     Dosage: UNK
  5. ATENOLOL [Concomitant]
     Indication: HYPERTENSION
     Dosage: UNK
  6. ELAVIL [Concomitant]
     Dosage: UNK

REACTIONS (4)
  - Drug ineffective [Unknown]
  - Feeling abnormal [Unknown]
  - Intervertebral disc protrusion [Unknown]
  - Hyperhidrosis [Unknown]
